FAERS Safety Report 5499392-4 (Version None)
Quarter: 2007Q4

REPORT INFORMATION
  Report Type: 
  Country: None (occurrence: None)
  Receive Date: 20071026
  Receipt Date: 20071015
  Transmission Date: 20080405
  Serious: Yes (Hospitalization)
  Sender: FDA-Public Use
  Company Number: B0469078A

PATIENT
  Age: 64 Year
  Sex: Male
  Weight: 69 kg

DRUGS (3)
  1. GW786034 [Suspect]
     Route: 048
     Dates: start: 20061130
  2. LAPATINIB [Suspect]
     Route: 048
     Dates: start: 20061215
  3. PARACETAMOL [Concomitant]
     Indication: ABDOMINAL PAIN
     Dosage: 1000MG FOUR TIMES PER DAY
     Route: 048

REACTIONS (2)
  - ABDOMINAL PAIN [None]
  - CONSTIPATION [None]
